FAERS Safety Report 5127842-1 (Version None)
Quarter: 2006Q4

REPORT INFORMATION
  Report Type: 
  Country: None (occurrence: None)
  Receive Date: 20061016
  Receipt Date: 20060904
  Transmission Date: 20070319
  Serious: Yes (Life-Threatening, Hospitalization, Other)
  Sender: FDA-Public Use
  Company Number: FR-BRISTOL-MYERS SQUIBB COMPANY-13500640

PATIENT
  Age: 76 Year
  Sex: Female
  Weight: 68 kg

DRUGS (5)
  1. TAXOL [Suspect]
     Indication: OVARIAN CANCER
     Route: 042
     Dates: start: 20060724, end: 20060830
  2. NEURONTIN [Concomitant]
     Route: 048
     Dates: start: 20060823
  3. SPASFON [Concomitant]
     Indication: ABDOMINAL PAIN
     Route: 048
     Dates: start: 20060822
  4. LAMALINE [Concomitant]
     Route: 048
     Dates: start: 20060822
  5. XANAX [Concomitant]
     Indication: ANXIETY
     Dates: start: 20060827

REACTIONS (3)
  - GANGRENE [None]
  - PAIN [None]
  - SHOCK [None]
